FAERS Safety Report 5848577-3 (Version None)
Quarter: 2008Q3

REPORT INFORMATION
  Report Type: 
  Country: None (occurrence: None)
  Receive Date: 20080815
  Receipt Date: 20080815
  Transmission Date: 20090109
  Serious: Yes (Disabling)
  Sender: FDA-Public Use
  Company Number: None

PATIENT
  Sex: Female
  Weight: 81.6 kg

DRUGS (1)
  1. TAXOL [Suspect]

REACTIONS (2)
  - CORONARY ARTERY DISEASE [None]
  - THROMBOSIS IN DEVICE [None]
